FAERS Safety Report 9450483 (Version 1)
Quarter: 2013Q3

REPORT INFORMATION
  Report Type: Spontaneous
  Country: US (occurrence: US)
  Receive Date: 20130809
  Receipt Date: 20130809
  Transmission Date: 20140515
  Serious: Yes (Hospitalization)
  Sender: FDA-Public Use
  Company Number: US-B.I. PHARMACEUTICALS,INC./RIDGEFIELD-2013-BI-23547BP

PATIENT
  Sex: Female

DRUGS (10)
  1. COMBIVENT [Suspect]
     Indication: CHRONIC OBSTRUCTIVE PULMONARY DISEASE
     Dosage: STRENGTH: 18 MCG / 103 MCG;
     Route: 055
     Dates: start: 2009, end: 201303
  2. COMBIVENT [Suspect]
     Indication: CHRONIC OBSTRUCTIVE PULMONARY DISEASE
     Dosage: STRENGTH: 20 MCG / 100 MCG;
     Route: 055
     Dates: start: 201303
  3. KLOR- CON [Concomitant]
     Indication: CARDIAC DISORDER
     Route: 048
     Dates: start: 2008
  4. HYDROXYUREA [Concomitant]
     Indication: LEUKAEMIA
     Route: 048
     Dates: start: 1997
  5. BACLOFEN [Concomitant]
     Indication: BACK PAIN
     Route: 048
  6. BISOPROLOL [Concomitant]
     Indication: CARDIAC ASSISTANCE DEVICE USER
     Dates: start: 2008
  7. MAGNESIUM OXIDE [Concomitant]
     Indication: CARDIAC ASSISTANCE DEVICE USER
     Route: 048
  8. PANTOPRAZOLE [Concomitant]
     Indication: GASTROOESOPHAGEAL REFLUX DISEASE
     Route: 048
     Dates: start: 2008
  9. SIMVASTATIN [Concomitant]
     Indication: BLOOD CHOLESTEROL INCREASED
     Route: 048
     Dates: start: 2008
  10. WAFARIN [Concomitant]
     Indication: CARDIAC ASSISTANCE DEVICE USER
     Route: 048
     Dates: start: 2008

REACTIONS (1)
  - Pneumonia [Recovered/Resolved]
